FAERS Safety Report 7973136-6 (Version None)
Quarter: 2011Q4

REPORT INFORMATION
  Report Type: 
  Country: None (occurrence: None)
  Receive Date: 20111213
  Receipt Date: 20111205
  Transmission Date: 20120403
  Serious: Yes (Hospitalization, Disabling)
  Sender: FDA-Public Use
  Company Number: JP-ASTELLAS-2011JP007774

PATIENT
  Sex: Male
  Weight: 8.1 kg

DRUGS (9)
  1. ETOPOSIDE [Concomitant]
     Route: 065
  2. DECADRON [Concomitant]
     Route: 065
  3. PROGRAF [Suspect]
     Indication: PROPHYLAXIS AGAINST GRAFT VERSUS HOST DISEASE
     Dosage: UNK
     Route: 065
     Dates: start: 20100520, end: 20111003
  4. ANTI-THYMOCYTE GLOBULIN NOS [Concomitant]
     Route: 065
  5. METHOTREXATE [Concomitant]
     Indication: PROPHYLAXIS AGAINST GRAFT VERSUS HOST DISEASE
     Route: 065
  6. CYCLOSPORINE [Concomitant]
     Route: 065
  7. FLUDARABINE PHOSPHATE [Concomitant]
     Route: 065
  8. MELPHALAN HYDROCHLORIDE [Concomitant]
     Route: 065
  9. PREDNISOLONE [Concomitant]
     Route: 065

REACTIONS (1)
  - FOOD ALLERGY [None]
